FAERS Safety Report 13357672 (Version 2)
Quarter: 2017Q3

REPORT INFORMATION
  Report Type: Spontaneous
  Country: GB (occurrence: GB)
  Receive Date: 20170322
  Receipt Date: 20170703
  Transmission Date: 20171127
  Serious: Yes (Death, Hospitalization, Other)
  Sender: FDA-Public Use
  Company Number: GB-SUN PHARMACEUTICAL INDUSTRIES LTD-2017RR-135822

PATIENT
  Age: 67 Year
  Sex: Male

DRUGS (16)
  1. ENALAPRIL [Concomitant]
     Active Substance: ENALAPRIL
     Indication: PRODUCT USED FOR UNKNOWN INDICATION
     Dosage: QD
     Route: 065
  2. TRAMADOL. [Concomitant]
     Active Substance: TRAMADOL
     Indication: OSTEOARTHRITIS
     Dosage: UNK
     Route: 065
     Dates: start: 201511
  3. GLYCERYL TRINITRATE [Concomitant]
     Active Substance: NITROGLYCERIN
     Indication: PRODUCT USED FOR UNKNOWN INDICATION
     Dosage: UNK
     Route: 065
  4. WARFARIN [Suspect]
     Active Substance: WARFARIN
     Indication: CARDIAC DISORDER
     Dosage: 10 MG, DAILY
     Route: 065
     Dates: start: 201606
  5. WARFARIN [Suspect]
     Active Substance: WARFARIN
     Dosage: 8 MG, DAILY
     Route: 065
  6. WARFARIN [Suspect]
     Active Substance: WARFARIN
     Dosage: 7 MG, DAILY
     Route: 065
  7. SPIRONOLACTONE. [Suspect]
     Active Substance: SPIRONOLACTONE
     Indication: FLUID RETENTION
     Dosage: 1 DF, QD
     Route: 065
     Dates: end: 201611
  8. ALLOPURINOL. [Concomitant]
     Active Substance: ALLOPURINOL
     Indication: GOUT
     Dosage: UNK
     Route: 065
  9. ISOSORBIDE. [Concomitant]
     Active Substance: ISOSORBIDE
     Indication: PRODUCT USED FOR UNKNOWN INDICATION
     Dosage: UNK
     Route: 065
  10. LEVOTHYROXINE. [Concomitant]
     Active Substance: LEVOTHYROXINE
     Indication: HYPOTHYROIDISM
     Dosage: QD
     Route: 065
  11. METOLAZONE. [Suspect]
     Active Substance: METOLAZONE
     Indication: FLUID RETENTION
     Dosage: 2.5 MG, 3/WEEK
     Route: 065
     Dates: end: 201611
  12. OMEPRAZOLE. [Concomitant]
     Active Substance: OMEPRAZOLE
     Dosage: 10 MG, DAILY
     Route: 065
  13. WARFARIN [Suspect]
     Active Substance: WARFARIN
     Dosage: 5 MG, DAILY
     Route: 065
  14. FUROSEMIDE. [Suspect]
     Active Substance: FUROSEMIDE
     Indication: FLUID RETENTION
     Dosage: 1 DF, BID
     Route: 065
     Dates: start: 201611
  15. WARFARIN [Suspect]
     Active Substance: WARFARIN
     Dosage: 6 MG, DAILY
     Route: 065
  16. OMEPRAZOLE. [Concomitant]
     Active Substance: OMEPRAZOLE
     Indication: PRODUCT USED FOR UNKNOWN INDICATION
     Dosage: 40 MG
     Route: 065

REACTIONS (15)
  - Nausea [Unknown]
  - Asthenia [Unknown]
  - Acute kidney injury [Unknown]
  - Orthopnoea [Not Recovered/Not Resolved]
  - Rash [Unknown]
  - Respiratory failure [Unknown]
  - Decreased appetite [Unknown]
  - Dyspnoea at rest [Not Recovered/Not Resolved]
  - Drug interaction [Unknown]
  - Therapeutic response decreased [Unknown]
  - Lethargy [Unknown]
  - Respiratory tract infection [Fatal]
  - Sepsis [Fatal]
  - Muscle spasms [Unknown]
  - Urine output decreased [Unknown]

NARRATIVE: CASE EVENT DATE: 201611
